FAERS Safety Report 4678695-7 (Version None)
Quarter: 2005Q2

REPORT INFORMATION
  Report Type: 
  Country: None (occurrence: None)
  Receive Date: 20050531
  Receipt Date: 20050516
  Transmission Date: 20051028
  Serious: Yes (Hospitalization)
  Sender: FDA-Public Use
  Company Number: 002#8#2005-00162

PATIENT
  Age: 60 Year
  Sex: Female
  Weight: 59 kg

DRUGS (3)
  1. OMEPRAZOLE [Suspect]
     Indication: MALLORY-WEISS SYNDROME
     Dosage: ORAL
     Route: 048
     Dates: start: 20030801, end: 20040121
  2. INSULIN [Concomitant]
  3. CILAZAPRIL [Concomitant]

REACTIONS (13)
  - ABDOMINAL PAIN [None]
  - ABDOMINAL TENDERNESS [None]
  - CACHEXIA [None]
  - FEELING ABNORMAL [None]
  - HIRSUTISM [None]
  - HYPONATRAEMIA [None]
  - IDIOSYNCRATIC DRUG REACTION [None]
  - METABOLIC DISORDER [None]
  - NAUSEA [None]
  - PYREXIA [None]
  - UTERINE LEIOMYOMA [None]
  - VOMITING [None]
  - WEIGHT DECREASED [None]
